FAERS Safety Report 15122410 (Version 1)
Quarter: 2018Q3

REPORT INFORMATION
  Report Type: Report from Study
  Country: PK (occurrence: PK)
  Receive Date: 20180709
  Receipt Date: 20180709
  Transmission Date: 20181010
  Serious: Yes (Other)
  Sender: FDA-Public Use
  Company Number: PHHY2018PK033334

PATIENT
  Age: 66 Year
  Sex: Male

DRUGS (1)
  1. CERTICAN [Suspect]
     Active Substance: EVEROLIMUS
     Indication: LIVER TRANSPLANT
     Dosage: 0.25 MG, BID
     Route: 048
     Dates: start: 20180611, end: 20180623

REACTIONS (8)
  - Cough [Unknown]
  - Pruritus [Unknown]
  - Sneezing [Unknown]
  - Dermatitis allergic [Unknown]
  - Mouth ulceration [Recovering/Resolving]
  - Rash [Unknown]
  - Type I hypersensitivity [Unknown]
  - Urticaria [Unknown]

NARRATIVE: CASE EVENT DATE: 20180611
